FAERS Safety Report 10465272 (Version 3)
Quarter: 2014Q4

REPORT INFORMATION
  Report Type: Spontaneous
  Country: US (occurrence: US)
  Receive Date: 20140919
  Receipt Date: 20141118
  Transmission Date: 20150528
  Serious: Yes (Hospitalization, Other)
  Sender: FDA-Public Use
  Company Number: US-B.I. PHARMACEUTICALS,INC./RIDGEFIELD-2014-BI-43816BP

PATIENT
  Age: 73 Year
  Sex: Female
  Weight: 75 kg

DRUGS (10)
  1. PRAVASTATIN [Concomitant]
     Active Substance: PRAVASTATIN\PRAVASTATIN SODIUM
     Indication: PRODUCT USED FOR UNKNOWN INDICATION
     Dosage: 40 MG
     Route: 048
  2. ACETAMINOPHEN-OXYCODONE [Concomitant]
     Indication: PAIN
     Dosage: 4 ANZ
     Route: 048
  3. METOPROLOL [Concomitant]
     Active Substance: METOPROLOL
     Indication: PRODUCT USED FOR UNKNOWN INDICATION
     Dosage: 100 MG
     Route: 048
  4. CENTRUM SILVER [Concomitant]
     Active Substance: VITAMINS
     Indication: PRODUCT USED FOR UNKNOWN INDICATION
     Route: 048
  5. OMEGA 3 [Concomitant]
     Active Substance: OMEGA-3 FATTY ACIDS
     Indication: PRODUCT USED FOR UNKNOWN INDICATION
     Dosage: 3500 MG
     Route: 048
  6. METAXALONE. [Concomitant]
     Active Substance: METAXALONE
     Indication: PAIN
     Dosage: 2400 MG
     Route: 048
  7. LISINOPRIL. [Concomitant]
     Active Substance: LISINOPRIL
     Indication: PRODUCT USED FOR UNKNOWN INDICATION
     Dosage: 10 MG
     Route: 048
  8. PRADAXA [Suspect]
     Active Substance: DABIGATRAN ETEXILATE MESYLATE
     Indication: ATRIAL FIBRILLATION
     Dosage: 300 MG
     Route: 048
     Dates: end: 201305
  9. CLONAZEPAM. [Concomitant]
     Active Substance: CLONAZEPAM
     Indication: PRODUCT USED FOR UNKNOWN INDICATION
     Dosage: 0.5 MG
     Route: 048
  10. FLUOXETINE [Concomitant]
     Active Substance: FLUOXETINE\FLUOXETINE HYDROCHLORIDE
     Indication: PRODUCT USED FOR UNKNOWN INDICATION
     Dosage: 80 MG
     Route: 048

REACTIONS (15)
  - Haemorrhagic stroke [Not Recovered/Not Resolved]
  - Deep vein thrombosis [Recovered/Resolved]
  - Cerebral atrophy [Unknown]
  - Constipation [Unknown]
  - Hypertensive emergency [Recovered/Resolved]
  - Fall [Unknown]
  - Joint injury [Unknown]
  - Left atrial dilatation [Unknown]
  - Aortic aneurysm [Unknown]
  - Atrial fibrillation [Recovered/Resolved]
  - Chronic sinusitis [Unknown]
  - Thrombosis [Recovered/Resolved]
  - Back pain [Unknown]
  - Left ventricular hypertrophy [Unknown]
  - Hypotension [Unknown]

NARRATIVE: CASE EVENT DATE: 20130301
